FAERS Safety Report 14843212 (Version 1)
Quarter: 2018Q2

REPORT INFORMATION
  Report Type: Spontaneous
  Country: US (occurrence: US)
  Receive Date: 20180503
  Receipt Date: 20180503
  Transmission Date: 20180711
  Serious: Yes (Other)
  Sender: FDA-Public Use
  Company Number: US-PFIZER INC-2018175031

PATIENT
  Sex: Male

DRUGS (3)
  1. VENTOLIN [Suspect]
     Active Substance: ALBUTEROL SULFATE
     Dosage: UNK
  2. SINGULAIR [Suspect]
     Active Substance: MONTELUKAST SODIUM
     Dosage: UNK
     Dates: start: 2010
  3. GABAPENTIN. [Suspect]
     Active Substance: GABAPENTIN
     Indication: PAIN
     Dosage: (DAY 1-1 CAP; DAY 2-2 CAP; DAY 3-3 CAP)
     Dates: start: 20171129, end: 20171202

REACTIONS (11)
  - Muscle spasms [Recovered/Resolved]
  - Pain in extremity [Recovered/Resolved]
  - Burning sensation [Recovered/Resolved]
  - Feeding disorder [Not Recovered/Not Resolved]
  - Product use in unapproved indication [Unknown]
  - Neuralgia [Recovered/Resolved]
  - Back disorder [Recovered/Resolved]
  - Formication [Recovered/Resolved]
  - Coordination abnormal [Recovered/Resolved]
  - Starvation [Not Recovered/Not Resolved]
  - Arthropathy [Recovered/Resolved]

NARRATIVE: CASE EVENT DATE: 20171129
